FAERS Safety Report 13638560 (Version 5)
Quarter: 2017Q3

REPORT INFORMATION
  Report Type: Report from Study
  Country: FR (occurrence: FR)
  Receive Date: 20170609
  Receipt Date: 20170925
  Transmission Date: 20171127
  Serious: Yes (Hospitalization)
  Sender: FDA-Public Use
  Company Number: PHHO2017FR008972

PATIENT
  Age: 70 Year
  Sex: Female

DRUGS (6)
  1. FLUDEX [Concomitant]
     Active Substance: INDAPAMIDE
     Indication: PRODUCT USED FOR UNKNOWN INDICATION
     Dosage: UNK
     Route: 048
  2. BISOPROLOL [Concomitant]
     Active Substance: BISOPROLOL
     Indication: PRODUCT USED FOR UNKNOWN INDICATION
     Dosage: UNK
     Route: 048
  3. PAZOPANIB [Suspect]
     Active Substance: PAZOPANIB
     Indication: OVARIAN CANCER
     Dosage: 600 MG/DAY (400+200MG FOR 7 DAYS AND THEN IN COMBINATION WITH WEEKLY PACLITAXEL ON DAYS 1, 8 AND 15
     Route: 048
     Dates: start: 20170424, end: 20170528
  4. PAZOPANIB [Suspect]
     Active Substance: PAZOPANIB
     Dosage: (400+200MG FOR 7 DAYS AND THEN IN COMBINATION WITH WEEKLY PACLITAXEL ON DAYS 1, 8 AND 15)
     Route: 048
     Dates: start: 20170606, end: 20170613
  5. PACLITAXEL. [Suspect]
     Active Substance: PACLITAXEL
     Indication: OVARIAN CANCER
     Dosage: 65 MG/M2, 3,1 WEEKS
     Route: 042
     Dates: start: 20170502
  6. DEROXAT [Concomitant]
     Active Substance: PAROXETINE HYDROCHLORIDE
     Indication: PRODUCT USED FOR UNKNOWN INDICATION
     Dosage: UNK
     Route: 048

REACTIONS (2)
  - Vomiting [Not Recovered/Not Resolved]
  - Depression [Recovered/Resolved]

NARRATIVE: CASE EVENT DATE: 20170529
